FAERS Safety Report 11717074 (Version 1)
Quarter: 2015Q4

REPORT INFORMATION
  Report Type: Spontaneous
  Country: JP (occurrence: JP)
  Receive Date: 20151109
  Receipt Date: 20151109
  Transmission Date: 20160304
  Serious: Yes (Other)
  Sender: FDA-Public Use
  Company Number: JP-GILEAD-2015-0173990

PATIENT
  Age: 79 Year
  Sex: Female

DRUGS (8)
  1. CELECOX [Concomitant]
     Active Substance: CELECOXIB
     Dosage: UNK
     Route: 048
  2. CHLOPHEDRIN S                      /00560301/ [Concomitant]
     Dosage: UNK
     Route: 048
  3. MOSAPRIDE [Concomitant]
     Active Substance: MOSAPRIDE
     Dosage: UNK
     Route: 048
  4. RIMATIL [Concomitant]
     Active Substance: BUCILLAMINE
     Dosage: UNK
     Route: 048
  5. HARVONI [Suspect]
     Active Substance: LEDIPASVIR\SOFOSBUVIR
     Indication: PRODUCT USED FOR UNKNOWN INDICATION
     Dosage: 1 DF, QD
     Route: 048
     Dates: start: 20150910
  6. VALSARTAN. [Concomitant]
     Active Substance: VALSARTAN
     Dosage: UNK
     Route: 048
  7. TRICHLORMETHIAZIDE [Concomitant]
     Active Substance: TRICHLORMETHIAZIDE
     Dosage: UNK
     Route: 048
  8. AMLODIPINE [Concomitant]
     Active Substance: AMLODIPINE BESYLATE
     Dosage: UNK
     Route: 048

REACTIONS (3)
  - Abdominal pain upper [Recovered/Resolved]
  - Vomiting [Recovered/Resolved]
  - Cellulitis [Unknown]

NARRATIVE: CASE EVENT DATE: 20150910
